FAERS Safety Report 7719826-1 (Version None)
Quarter: 2011Q3

REPORT INFORMATION
  Report Type: 
  Country: None (occurrence: None)
  Receive Date: 20110831
  Receipt Date: 20110822
  Transmission Date: 20111222
  Serious: No
  Sender: FDA-Public Use
  Company Number: US-BIOGENIDEC-2011BI029991

PATIENT
  Age: 31 Year
  Sex: Female

DRUGS (4)
  1. AVONEX [Concomitant]
     Indication: MULTIPLE SCLEROSIS
     Route: 030
  2. TYSABRI [Suspect]
     Route: 042
     Dates: start: 20050128
  3. TYSABRI [Suspect]
     Route: 042
     Dates: start: 20061127, end: 20080918
  4. TYSABRI [Suspect]
     Indication: MULTIPLE SCLEROSIS
     Route: 042
     Dates: start: 20110418

REACTIONS (4)
  - TREMOR [None]
  - MULTIPLE SCLEROSIS RELAPSE [None]
  - ABASIA [None]
  - DRUG INEFFECTIVE [None]
